FAERS Safety Report 4919913-7 (Version None)
Quarter: 2006Q1

REPORT INFORMATION
  Report Type: 
  Country: None (occurrence: None)
  Receive Date: 20060217
  Receipt Date: 20060204
  Transmission Date: 20060701
  Serious: Yes (Hospitalization)
  Sender: FDA-Public Use
  Company Number: 2006018027

PATIENT
  Age: 77 Year
  Sex: Male
  Weight: 95.2554 kg

DRUGS (12)
  1. VIAGRA [Suspect]
     Indication: ERECTILE DYSFUNCTION
     Dosage: (50 MG, AS NECESSARY), ORAL
     Route: 048
     Dates: start: 20050601
  2. ATENOLOL [Concomitant]
  3. FUROSEMIDE [Concomitant]
  4. POTASSIUM (POTASSIUM) [Concomitant]
  5. OMEPRAZOLE [Concomitant]
  6. NIASPAN [Concomitant]
  7. PLAVIX [Concomitant]
  8. LIPITOR [Concomitant]
  9. GLUCOTROL [Concomitant]
  10. TAMSULOSIN HCL [Concomitant]
  11. ADVAIR (FLUTICASONE PROPIONATE, SALMETEROL XINAROATE) [Concomitant]
  12. SPIRIVA [Concomitant]

REACTIONS (1)
  - ARRHYTHMIA [None]
